FAERS Safety Report 7476236-2 (Version None)
Quarter: 2011Q2

REPORT INFORMATION
  Report Type: 
  Country: None (occurrence: None)
  Receive Date: 20110512
  Receipt Date: 20110429
  Transmission Date: 20111010
  Serious: Yes (Other)
  Sender: FDA-Public Use
  Company Number: US-JNJFOC-20110501943

PATIENT
  Sex: Male
  Weight: 113.4 kg

DRUGS (5)
  1. NUCYNTA [Suspect]
     Indication: NEUROPATHY PERIPHERAL
     Route: 048
  2. NAPROXEN [Concomitant]
     Indication: PAIN
     Route: 048
  3. NUCYNTA [Suspect]
     Indication: TOE AMPUTATION
     Route: 048
  4. ATIVAN [Concomitant]
     Indication: ANXIETY
     Route: 048
  5. GABAPENTIN [Concomitant]
     Indication: PAIN
     Dosage: 2 AT NIGHT AND 2 DURING THE DAY
     Route: 048

REACTIONS (7)
  - DYSPNOEA [None]
  - URTICARIA [None]
  - THROAT TIGHTNESS [None]
  - ERYTHEMA [None]
  - WRONG TECHNIQUE IN DRUG USAGE PROCESS [None]
  - PRODUCT QUALITY ISSUE [None]
  - OEDEMA PERIPHERAL [None]
